FAERS Safety Report 8358368-X (Version None)
Quarter: 2012Q2

REPORT INFORMATION
  Report Type: 
  Country: None (occurrence: None)
  Receive Date: 20120514
  Receipt Date: 20120417
  Transmission Date: 20120825
  Serious: Yes (Other)
  Sender: FDA-Public Use
  Company Number: BR-ROCHE-1047561

PATIENT
  Age: 19 Year
  Sex: Female
  Weight: 55 kg

DRUGS (1)
  1. ISOTRETINOIN [Suspect]
     Indication: ACNE CYSTIC
     Route: 048
     Dates: start: 20100204, end: 20101101

REACTIONS (3)
  - HODGKIN'S DISEASE [None]
  - ACNE [None]
  - ACNE CYSTIC [None]
